FAERS Safety Report 7722386-2 (Version None)
Quarter: 2011Q3

REPORT INFORMATION
  Report Type: 
  Country: None (occurrence: None)
  Receive Date: 20110831
  Receipt Date: 20110825
  Transmission Date: 20111222
  Serious: Yes (Other)
  Sender: FDA-Public Use
  Company Number: US-ABBOTT-11P-163-0849802-00

PATIENT
  Age: 23 Year
  Sex: Female

DRUGS (2)
  1. PRENATAL VITAMINS [Concomitant]
     Indication: IRON DEFICIENCY
  2. HUMIRA [Suspect]
     Indication: CROHN'S DISEASE
     Dates: start: 20110525

REACTIONS (5)
  - NAUSEA [None]
  - ABDOMINAL PAIN [None]
  - FISTULA DISCHARGE [None]
  - FISTULA [None]
  - HEADACHE [None]
